FAERS Safety Report 24574991 (Version 1)
Quarter: 2024Q4

REPORT INFORMATION
  Report Type: Spontaneous
  Country: RS (occurrence: RS)
  Receive Date: 20241104
  Receipt Date: 20241104
  Transmission Date: 20250115
  Serious: Yes (Death)
  Sender: ROCHE
  Company Number: RS-ROCHE-10000121066

PATIENT
  Age: 61 Year
  Sex: Male

DRUGS (2)
  1. TECENTRIQ [Suspect]
     Active Substance: ATEZOLIZUMAB
     Indication: Adenocarcinoma
     Dosage: 3 CYCLES??LAST CYCLE: 20/SEP/2024
     Route: 065
     Dates: start: 20240806
  2. TECENTRIQ [Suspect]
     Active Substance: ATEZOLIZUMAB
     Dosage: 2 CYCLES??LAST CYCLE: 07/SEP/2024
     Route: 065
     Dates: start: 20240812

REACTIONS (1)
  - Death [Fatal]
